FAERS Safety Report 13815090 (Version 4)
Quarter: 2017Q3

REPORT INFORMATION
  Report Type: Spontaneous
  Country: HU (occurrence: HU)
  Receive Date: 20170731
  Receipt Date: 20170914
  Transmission Date: 20171127
  Serious: Yes (Other)
  Sender: FDA-Public Use
  Company Number: HU-PFIZER INC-2017323211

PATIENT
  Age: 49 Year
  Sex: Female

DRUGS (2)
  1. CHAMPIX [Suspect]
     Active Substance: VARENICLINE TARTRATE
     Indication: SMOKING CESSATION THERAPY
     Dosage: 0.5 MG, 1X/DAY, IN THE EVENINGS (1-3 DAYS)
     Route: 048
     Dates: start: 201707
  2. CHAMPIX [Suspect]
     Active Substance: VARENICLINE TARTRATE
     Dosage: 0.5 MG, 2X/DAY WAS STARTED

REACTIONS (3)
  - Arthralgia [Recovering/Resolving]
  - Neoplasm skin [Recovering/Resolving]
  - Arthritis [Recovering/Resolving]

NARRATIVE: CASE EVENT DATE: 201707
